FAERS Safety Report 6679947-1 (Version None)
Quarter: 2010Q2

REPORT INFORMATION
  Report Type: 
  Country: None (occurrence: None)
  Receive Date: 20100413
  Receipt Date: 20100331
  Transmission Date: 20101027
  Serious: Yes (Disabling)
  Sender: FDA-Public Use
  Company Number: US-ELI_LILLY_AND_COMPANY-US201004001226

PATIENT
  Sex: Female

DRUGS (7)
  1. FORTEO [Suspect]
     Indication: OSTEOPOROSIS
     Dosage: 20 UG, DAILY (1/D)
     Dates: start: 20100101, end: 20100317
  2. LANOXIN [Concomitant]
     Dosage: UNK, DAILY (1/D)
  3. LIPITOR [Concomitant]
  4. MECLIZINE [Concomitant]
     Dosage: UNK, DAILY (1/D)
  5. VITAMIN D [Concomitant]
     Dosage: 50000 U, MONTHLY (1/M)
  6. CALCIUM [Concomitant]
     Dosage: UNK, DAILY (1/D)
  7. PROBIOTICA [Concomitant]

REACTIONS (4)
  - ARTHRALGIA [None]
  - GROIN PAIN [None]
  - PAIN [None]
  - PAIN IN EXTREMITY [None]
